FAERS Safety Report 9350534 (Version 1)
Quarter: 2013Q2

REPORT INFORMATION
  Report Type: Spontaneous
  Country: US (occurrence: None)
  Receive Date: 20130613
  Receipt Date: 20130613
  Transmission Date: 20140414
  Serious: Yes (Other)
  Sender: FDA-Public Use
  Company Number: None

PATIENT
  Age: 35 Year
  Sex: Male
  Weight: 70.31 kg

DRUGS (1)
  1. TERBINAFINE TABLETS 250MG CAMBER [Suspect]
     Dosage: 1 TABLET 1 DAILY PO
     Route: 048
     Dates: start: 20130325, end: 20130608

REACTIONS (4)
  - Ageusia [None]
  - Abdominal pain [None]
  - Hypophagia [None]
  - Depression [None]
